FAERS Safety Report 14827932 (Version 2)
Quarter: 2018Q2

REPORT INFORMATION
  Report Type: Report from Study
  Country: CA (occurrence: CA)
  Receive Date: 20180430
  Receipt Date: 20180508
  Transmission Date: 20180711
  Serious: Yes (Other)
  Sender: FDA-Public Use
  Company Number: CA-JNJFOC-20180430730

PATIENT
  Age: 66 Year
  Sex: Male
  Weight: 74.5 kg

DRUGS (4)
  1. ALCOHOL. [Suspect]
     Active Substance: ALCOHOL
     Indication: LUNG NEOPLASM MALIGNANT
     Route: 050
     Dates: start: 20180426
  2. REMICADE [Suspect]
     Active Substance: INFLIXIMAB
     Indication: CROHN^S DISEASE
     Route: 042
     Dates: start: 20120326
  3. REMICADE [Suspect]
     Active Substance: INFLIXIMAB
     Indication: CROHN^S DISEASE
     Route: 042
  4. ALCOHOL. [Suspect]
     Active Substance: ALCOHOL
     Indication: LUNG NEOPLASM MALIGNANT
     Route: 050
     Dates: start: 20180419

REACTIONS (4)
  - Heart rate decreased [Unknown]
  - Product use issue [Unknown]
  - Hepatic cancer [Unknown]
  - Off label use [Unknown]

NARRATIVE: CASE EVENT DATE: 20120326
